FAERS Safety Report 13119177 (Version 1)
Quarter: 2017Q1

REPORT INFORMATION
  Report Type: Spontaneous
  Country: US (occurrence: US)
  Receive Date: 20170116
  Receipt Date: 20170116
  Transmission Date: 20170428
  Serious: Yes (Life-Threatening, Hospitalization, Other)
  Sender: FDA-Public Use
  Company Number: US-ELI_LILLY_AND_COMPANY-US201607010605

PATIENT
  Age: 43 Year
  Sex: Female

DRUGS (2)
  1. CYMBALTA [Suspect]
     Active Substance: DULOXETINE HYDROCHLORIDE
     Indication: PRODUCT USED FOR UNKNOWN INDICATION
     Dosage: 30 MG, UNKNOWN
     Route: 065
     Dates: start: 20120301, end: 20120307
  2. CYMBALTA [Suspect]
     Active Substance: DULOXETINE HYDROCHLORIDE
     Dosage: 60 MG, UNKNOWN
     Route: 065
     Dates: start: 20120308

REACTIONS (15)
  - Acute respiratory failure [Unknown]
  - Affect lability [Unknown]
  - Pneumonia aspiration [Recovered/Resolved]
  - Paraesthesia [Unknown]
  - Irritability [Unknown]
  - Intentional overdose [Unknown]
  - Suicidal ideation [Unknown]
  - Agitation [Unknown]
  - Drug withdrawal syndrome [Unknown]
  - Insomnia [Unknown]
  - Dizziness [Unknown]
  - Nausea [Unknown]
  - Suicide attempt [Unknown]
  - Vertigo [Unknown]
  - Anxiety [Unknown]

NARRATIVE: CASE EVENT DATE: 20120502
